FAERS Safety Report 24950759 (Version 2)
Quarter: 2025Q1

REPORT INFORMATION
  Report Type: Spontaneous
  Country: JP (occurrence: JP)
  Receive Date: 20250210
  Receipt Date: 20250218
  Transmission Date: 20250408
  Serious: Yes (Other)
  Sender: ALEXION PHARMACEUTICALS
  Company Number: JP-ASTRAZENECA-250012614_063010_P_1

PATIENT
  Age: 8 Decade

DRUGS (10)
  1. DAPAGLIFLOZIN [Suspect]
     Active Substance: DAPAGLIFLOZIN
     Indication: Chronic kidney disease
     Dosage: 10 MILLIGRAM, QD
  2. BEZAFIBRATE [Concomitant]
     Active Substance: BEZAFIBRATE
  3. BEZAFIBRATE [Concomitant]
     Active Substance: BEZAFIBRATE
  4. FEBUXOSTAT [Concomitant]
     Active Substance: FEBUXOSTAT
     Route: 065
  5. NORVASC [Concomitant]
     Active Substance: AMLODIPINE BESYLATE
     Route: 065
  6. ASPIRIN\LANSOPRAZOLE [Concomitant]
     Active Substance: ASPIRIN\LANSOPRAZOLE
  7. ICOSAPENT [Concomitant]
     Active Substance: ICOSAPENT
     Route: 065
  8. OPALMON [Concomitant]
     Active Substance: LIMAPROST
  9. HERBALS [Concomitant]
     Active Substance: HERBALS
     Route: 065
  10. LOXOPROFEN SODIUM [Concomitant]
     Active Substance: LOXOPROFEN SODIUM

REACTIONS (1)
  - Renal impairment [Unknown]
